FAERS Safety Report 5061017-X (Version None)
Quarter: 2006Q3

REPORT INFORMATION
  Report Type: 
  Country: None (occurrence: None)
  Receive Date: 20060719
  Receipt Date: 20060719
  Transmission Date: 20061208
  Serious: Yes (Life-Threatening)
  Sender: FDA-Public Use
  Company Number: None

PATIENT
  Sex: Male

DRUGS (9)
  1. EPTIFIBATIDE  75 MG [Suspect]
     Indication: STENT PLACEMENT
     Dosage: 2 MCG/KG/MIN  IV
     Route: 042
     Dates: start: 20060331, end: 20060401
  2. HEPARIN [Concomitant]
  3. CLOPIDOGREL [Concomitant]
  4. LISINOPRIL [Concomitant]
  5. METOPROLOL [Concomitant]
  6. FELODIPINE [Concomitant]
  7. WARFARIN SODIUM [Concomitant]
  8. BUPROPION HCL [Concomitant]
  9. SIMVASTATIN [Concomitant]

REACTIONS (1)
  - PLATELET COUNT DECREASED [None]
